FAERS Safety Report 10629012 (Version 2)
Quarter: 2014Q4

REPORT INFORMATION
  Report Type: Spontaneous
  Country: US (occurrence: US)
  Receive Date: 20141205
  Receipt Date: 20141205
  Transmission Date: 20150529
  Serious: Yes (Hospitalization)
  Sender: FDA-Public Use
  Company Number: US-BRISTOL-MYERS SQUIBB COMPANY-21575410

PATIENT
  Age: 86 Year
  Sex: Male

DRUGS (9)
  1. AMARYL [Concomitant]
     Active Substance: GLIMEPIRIDE
  2. ZOLOFT [Concomitant]
     Active Substance: SERTRALINE HYDROCHLORIDE
  3. DOXYCYCLINE. [Concomitant]
     Active Substance: DOXYCYCLINE
  4. IBRUTINIB [Suspect]
     Active Substance: IBRUTINIB
     Indication: MANTLE CELL LYMPHOMA
     Dosage: CAPS,
     Route: 048
     Dates: start: 20140828, end: 201409
  5. COUMADIN [Suspect]
     Active Substance: WARFARIN SODIUM
     Dates: end: 201409
  6. LOSARTAN [Concomitant]
     Active Substance: LOSARTAN
  7. FLOMAX [Concomitant]
     Active Substance: TAMSULOSIN HYDROCHLORIDE
  8. WELLBUTRIN [Concomitant]
     Active Substance: BUPROPION HYDROCHLORIDE
  9. PROCHLORPERAZINE. [Concomitant]
     Active Substance: PROCHLORPERAZINE

REACTIONS (2)
  - Epistaxis [Unknown]
  - Drug level increased [Unknown]

NARRATIVE: CASE EVENT DATE: 201409
